FAERS Safety Report 20697584 (Version 2)
Quarter: 2022Q2

REPORT INFORMATION
  Report Type: Spontaneous
  Country: US (occurrence: US)
  Receive Date: 20220411
  Receipt Date: 20220416
  Transmission Date: 20220721
  Serious: No
  Sender: FDA-Public Use
  Company Number: US-FRESENIUS KABI-FK202204169

PATIENT
  Age: 72 Year
  Sex: Male
  Weight: 89.3 kg

DRUGS (1)
  1. GENTAMICIN [Suspect]
     Active Substance: GENTAMICIN
     Indication: Cystitis
     Dates: start: 20220308, end: 20220312

REACTIONS (4)
  - Nodule [Recovering/Resolving]
  - Skin mass [Recovering/Resolving]
  - Injection site nodule [Recovering/Resolving]
  - Injection site mass [Recovering/Resolving]

NARRATIVE: CASE EVENT DATE: 20220308
